FAERS Safety Report 12317456 (Version 1)
Quarter: 2016Q2

REPORT INFORMATION
  Report Type: Spontaneous
  Country: US (occurrence: US)
  Receive Date: 20160429
  Receipt Date: 20160429
  Transmission Date: 20160815
  Serious: Yes (Hospitalization, Other)
  Sender: FDA-Public Use
  Company Number: US-TEVA-655596USA

PATIENT
  Sex: Female

DRUGS (1)
  1. ADIPEX-P [Suspect]
     Active Substance: PHENTERMINE HYDROCHLORIDE
     Route: 065

REACTIONS (7)
  - Social avoidant behaviour [Not Recovered/Not Resolved]
  - Substance-induced psychotic disorder [Unknown]
  - Anxiety [Not Recovered/Not Resolved]
  - Major depression [Not Recovered/Not Resolved]
  - Insomnia [Unknown]
  - Violence-related symptom [Unknown]
  - Abnormal behaviour [Not Recovered/Not Resolved]
